FAERS Safety Report 22650944 (Version 1)
Quarter: 2023Q2

REPORT INFORMATION
  Report Type: Spontaneous
  Country: SK (occurrence: SK)
  Receive Date: 20230628
  Receipt Date: 20230628
  Transmission Date: 20230722
  Serious: Yes (Death, Hospitalization)
  Sender: FDA-Public Use
  Company Number: SK-PFIZER INC-PV202300111507

PATIENT
  Age: 79 Year

DRUGS (11)
  1. FLUCONAZOLE [Suspect]
     Active Substance: FLUCONAZOLE
     Indication: Pseudoaneurysm infection
     Dosage: UNK
  2. FLUCONAZOLE [Suspect]
     Active Substance: FLUCONAZOLE
     Indication: Infective aortitis
  3. MEROPENEM [Concomitant]
     Active Substance: MEROPENEM
  4. VANCOMYCIN [Suspect]
     Active Substance: VANCOMYCIN
     Indication: Pseudoaneurysm infection
  5. VANCOMYCIN [Suspect]
     Active Substance: VANCOMYCIN
     Indication: Infective aortitis
  6. GENTAMICIN [Suspect]
     Active Substance: GENTAMICIN
     Indication: Pseudoaneurysm infection
     Dosage: UNK
  7. GENTAMICIN [Suspect]
     Active Substance: GENTAMICIN
     Indication: Infective aortitis
  8. METRONIDAZOLE [Suspect]
     Active Substance: METRONIDAZOLE
     Indication: Pseudoaneurysm infection
     Dosage: UNK
  9. METRONIDAZOLE [Suspect]
     Active Substance: METRONIDAZOLE
     Indication: Infective aortitis
  10. CEFTRIAXONE [Concomitant]
     Active Substance: CEFTRIAXONE
     Dosage: UNK
  11. MOXIFLOXACIN [Concomitant]
     Active Substance: MOXIFLOXACIN
     Dosage: UNK

REACTIONS (1)
  - Drug ineffective [Fatal]
